FAERS Safety Report 15382637 (Version 1)
Quarter: 2018Q3

REPORT INFORMATION
  Report Type: Spontaneous
  Country: US (occurrence: US)
  Receive Date: 20180913
  Receipt Date: 20180913
  Transmission Date: 20181010
  Serious: No
  Sender: FDA-Public Use
  Company Number: US-ASTELLAS-2017US047146

PATIENT
  Age: 66 Year
  Sex: Male

DRUGS (1)
  1. XTANDI [Suspect]
     Active Substance: ENZALUTAMIDE
     Indication: PROSTATE CANCER
     Route: 048
     Dates: start: 20170808, end: 20171106

REACTIONS (10)
  - Muscular weakness [Unknown]
  - Fatigue [Unknown]
  - Dizziness [Unknown]
  - Memory impairment [Unknown]
  - Pain [Unknown]
  - Decreased appetite [Unknown]
  - Headache [Unknown]
  - Balance disorder [Unknown]
  - Gait disturbance [Unknown]
  - Influenza [Unknown]

NARRATIVE: CASE EVENT DATE: 20171101
